APPROVED DRUG PRODUCT: ETHOSUXIMIDE
Active Ingredient: ETHOSUXIMIDE
Strength: 250MG
Dosage Form/Route: CAPSULE;ORAL
Application: A211928 | Product #001 | TE Code: AB
Applicant: ONESOURCE SPECIALTY PTE LTD
Approved: Feb 19, 2019 | RLD: No | RS: No | Type: RX